FAERS Safety Report 9651612 (Version 2)
Quarter: 2014Q1

REPORT INFORMATION
  Report Type: Spontaneous
  Country: US (occurrence: US)
  Receive Date: 20131029
  Receipt Date: 20140128
  Transmission Date: 20141002
  Serious: Yes (Hospitalization, Other)
  Sender: FDA-Public Use
  Company Number: US-ASTELLAS-2013US011151

PATIENT
  Age: 76 Year
  Sex: Female

DRUGS (4)
  1. TARCEVA [Suspect]
     Indication: LUNG NEOPLASM MALIGNANT
     Dosage: 150 MG, UID/QD
     Route: 048
     Dates: start: 2009, end: 200907
  2. TARCEVA [Suspect]
     Indication: BRAIN NEOPLASM MALIGNANT
  3. TARCEVA [Suspect]
     Indication: LUNG NEOPLASM MALIGNANT
  4. COUMADIN                           /00014802/ [Concomitant]
     Indication: PRODUCT USED FOR UNKNOWN INDICATION
     Dosage: UNK
     Route: 065

REACTIONS (8)
  - Nervous system disorder [Recovered/Resolved]
  - Post procedural complication [Unknown]
  - Thrombosis [Unknown]
  - Cerebrovascular accident [Recovered/Resolved]
  - Gastrooesophageal reflux disease [Not Recovered/Not Resolved]
  - Temperature intolerance [Not Recovered/Not Resolved]
  - Hiatus hernia [Not Recovered/Not Resolved]
  - Malaise [Unknown]
